FAERS Safety Report 8397194-2 (Version None)
Quarter: 2012Q2

REPORT INFORMATION
  Report Type: 
  Country: None (occurrence: None)
  Receive Date: 20120530
  Receipt Date: 20120524
  Transmission Date: 20120825
  Serious: Yes (Hospitalization, Disabling)
  Sender: FDA-Public Use
  Company Number: US-MERCK-1203USA03473

PATIENT
  Age: 89 Year
  Sex: Female

DRUGS (3)
  1. FOSAMAX [Suspect]
     Indication: BONE DENSITY ABNORMAL
     Route: 048
     Dates: start: 20050401
  2. ALENDRONATE SODIUM [Suspect]
     Route: 048
     Dates: start: 20080301
  3. FOSAMAX PLUS D [Suspect]
     Indication: BONE DENSITY ABNORMAL
     Route: 048

REACTIONS (8)
  - ANAEMIA OF MALIGNANT DISEASE [None]
  - ELECTROCARDIOGRAM CHANGE [None]
  - SPINAL OSTEOARTHRITIS [None]
  - HYPOTHYROIDISM [None]
  - ARTHROPATHY [None]
  - FALL [None]
  - ANXIETY [None]
  - FEMORAL NECK FRACTURE [None]
